FAERS Safety Report 5188267-6 (Version None)
Quarter: 2006Q4

REPORT INFORMATION
  Report Type: 
  Country: None (occurrence: None)
  Receive Date: 20061221
  Receipt Date: 20061129
  Transmission Date: 20070319
  Serious: Yes (Other)
  Sender: FDA-Public Use
  Company Number: FR-GLAXOSMITHKLINE-B0449139A

PATIENT
  Age: 68 Year
  Sex: Female
  Weight: 51 kg

DRUGS (5)
  1. ZELITREX [Suspect]
     Indication: HERPES ZOSTER
     Dosage: 250MG PER DAY
     Route: 048
  2. LIPANOR [Concomitant]
     Dates: start: 19760101
  3. AERIUS [Concomitant]
     Dates: start: 20060501
  4. SERESTA [Concomitant]
  5. TRANXENE [Concomitant]

REACTIONS (4)
  - LEUKOCYTURIA [None]
  - NEPHRITIS INTERSTITIAL [None]
  - RENAL FAILURE ACUTE [None]
  - RENAL FAILURE CHRONIC [None]
